FAERS Safety Report 6835539-2 (Version None)
Quarter: 2010Q3

REPORT INFORMATION
  Report Type: 
  Country: None (occurrence: None)
  Receive Date: 20100713
  Receipt Date: 20100707
  Transmission Date: 20110219
  Serious: Yes (Death, Hospitalization)
  Sender: FDA-Public Use
  Company Number: PHHY2010JP32731

PATIENT
  Sex: Male
  Weight: 43 kg

DRUGS (10)
  1. RASILEZ [Suspect]
     Indication: HYPERTENSION
     Dosage: 150 MG DAILY
     Route: 048
     Dates: start: 20100204
  2. JUVELA [Concomitant]
     Indication: ARTERIOSCLEROSIS
     Dosage: 200 MG, UNK
     Route: 048
     Dates: start: 20100128, end: 20100413
  3. AMLODIN [Concomitant]
     Indication: HYPERTENSION
     Dosage: 2.5 MG, UNK
     Route: 048
     Dates: start: 20100128
  4. BLOPRESS [Concomitant]
     Indication: HYPERTENSION
     Dosage: 4 MG, UNK
     Route: 048
     Dates: start: 20100128, end: 20100307
  5. DOXAZOSIN MESYLATE [Concomitant]
     Dosage: 1 MG, UNK
     Route: 048
     Dates: start: 20100128, end: 20100216
  6. ASPIRIN [Concomitant]
     Indication: ARTERIOSCLEROSIS
     Dosage: 100 MG, UNK
     Route: 048
     Dates: start: 20100128, end: 20100316
  7. TAGAMET [Concomitant]
     Indication: GASTRITIS
     Dosage: 200 MG, UNK
     Route: 048
     Dates: start: 20100128, end: 20100330
  8. SEVELAMER HYDROCHLORIDE [Concomitant]
     Indication: HYPERPHOSPHATAEMIA
     Dosage: 3000 MG, UNK
     Route: 048
     Dates: start: 20100128, end: 20100330
  9. OXAROL [Concomitant]
     Indication: HYPERPARATHYROIDISM SECONDARY
     Dosage: 2.5 UG, UNK
     Route: 042
     Dates: start: 20100128, end: 20100515
  10. NESP [Concomitant]
     Indication: NEPHROGENIC ANAEMIA
     Dosage: 20 UG, UNK
     Route: 042
     Dates: start: 20100128, end: 20100515

REACTIONS (5)
  - CARDIO-RESPIRATORY ARREST [None]
  - CEREBRAL HAEMORRHAGE [None]
  - DEPRESSED LEVEL OF CONSCIOUSNESS [None]
  - PNEUMONIA [None]
  - PYREXIA [None]
